FAERS Safety Report 21508246 (Version 1)
Quarter: 2022Q4

REPORT INFORMATION
  Report Type: Spontaneous
  Country: US (occurrence: US)
  Receive Date: 20221026
  Receipt Date: 20221026
  Transmission Date: 20230113
  Serious: Yes (Hospitalization, Other)
  Sender: FDA-Public Use
  Company Number: US-drreddys-LIT/USA/22/0156181

PATIENT
  Age: 63 Year
  Sex: Female

DRUGS (1)
  1. DOBUTAMINE HYDROCHLORIDE [Suspect]
     Active Substance: DOBUTAMINE HYDROCHLORIDE
     Indication: Cardiogenic shock

REACTIONS (5)
  - Mental impairment [Unknown]
  - Ventricular extrasystoles [Unknown]
  - Shock [Unknown]
  - Distributive shock [Unknown]
  - Drug ineffective [Unknown]
